FAERS Safety Report 4781436-6 (Version None)
Quarter: 2005Q3

REPORT INFORMATION
  Report Type: 
  Country: None (occurrence: None)
  Receive Date: 20050928
  Receipt Date: 20050921
  Transmission Date: 20060218
  Serious: Yes (Hospitalization, Other)
  Sender: FDA-Public Use
  Company Number: US-MERCK-0509USA03444

PATIENT
  Age: 80 Year
  Sex: Female
  Weight: 70 kg

DRUGS (7)
  1. VIOXX [Suspect]
     Indication: BACK PAIN
     Route: 048
     Dates: start: 20010824, end: 20020801
  2. VIOXX [Suspect]
     Indication: ARTHRITIS
     Route: 048
     Dates: start: 20010824, end: 20020801
  3. LEVOTHROID [Concomitant]
     Route: 065
  4. CYCLOBENZAPRINE HYDROCHLORIDE [Concomitant]
     Route: 065
  5. NORVASC [Concomitant]
     Route: 065
  6. METOPROLOL [Concomitant]
     Route: 065
  7. ACULAR [Concomitant]
     Route: 065

REACTIONS (5)
  - CEREBROVASCULAR ACCIDENT [None]
  - CONVULSION [None]
  - DYSPHAGIA [None]
  - DYSTHYMIC DISORDER [None]
  - TRANSIENT ISCHAEMIC ATTACK [None]
